FAERS Safety Report 7481256-8 (Version None)
Quarter: 2011Q2

REPORT INFORMATION
  Report Type: 
  Country: None (occurrence: None)
  Receive Date: 20110506
  Receipt Date: 20110502
  Transmission Date: 20111010
  Serious: Yes (Hospitalization)
  Sender: FDA-Public Use
  Company Number: WAES 1104FRA00147

PATIENT
  Age: 68 Year
  Sex: Male

DRUGS (7)
  1. ASPIRIN [Concomitant]
  2. TAB RALTEGRAVIR POTASSIUM [Suspect]
     Indication: HIV INFECTION
     Dosage: 400 MG/BID PO
     Route: 048
     Dates: start: 20110209
  3. INJ MUPLESTIM [Suspect]
     Dosage: 0.53 ML/DAILY SC
     Route: 058
     Dates: start: 20110405, end: 20110419
  4. ABACAVIR SULFATE/LAMIVUDINE [Concomitant]
  5. DARUNAVIR ETHANOLATE [Concomitant]
  6. MARAVIROC [Suspect]
     Indication: HIV INFECTION
     Dosage: 300 MG/DAILY PO
     Route: 048
     Dates: start: 20110209
  7. RITONAVIR [Concomitant]

REACTIONS (3)
  - INJECTION SITE ERYTHEMA [None]
  - PAIN IN EXTREMITY [None]
  - PHLEBITIS [None]
